FAERS Safety Report 14998196 (Version 1)
Quarter: 2018Q2

REPORT INFORMATION
  Report Type: Spontaneous
  Country: US (occurrence: US)
  Receive Date: 20180519
  Receipt Date: 20180519
  Transmission Date: 20180711
  Serious: Yes (Hospitalization)
  Sender: FDA-Public Use
  Company Number: None

PATIENT
  Age: 76 Year
  Sex: Male

DRUGS (2)
  1. WARFARIN [Suspect]
     Active Substance: WARFARIN
     Indication: ATRIAL FIBRILLATION
     Route: 048
     Dates: start: 20021101, end: 20180405
  2. DEXTROSE/HEPARIN [Suspect]
     Active Substance: DEXTROSE\HEPARIN
     Indication: ATRIAL FIBRILLATION
     Dates: start: 20180402, end: 20180405

REACTIONS (3)
  - Haemoptysis [None]
  - International normalised ratio increased [None]
  - Haemorrhage [None]

NARRATIVE: CASE EVENT DATE: 20180405
